FAERS Safety Report 7867173-X (Version None)
Quarter: 2011Q4

REPORT INFORMATION
  Report Type: 
  Country: None (occurrence: None)
  Receive Date: 20111028
  Receipt Date: 20111019
  Transmission Date: 20120403
  Serious: Yes (Hospitalization)
  Sender: FDA-Public Use
  Company Number: US-GLAXOSMITHKLINE-A0890094A

PATIENT
  Age: 76 Year
  Sex: Male
  Weight: 97.3 kg

DRUGS (1)
  1. AVANDIA [Suspect]
     Indication: DIABETES MELLITUS
     Dosage: 4MG PER DAY
     Route: 048
     Dates: start: 20070401, end: 20081220

REACTIONS (3)
  - CORONARY ARTERY DISEASE [None]
  - ANGINA PECTORIS [None]
  - MYOCARDIAL ISCHAEMIA [None]
